FAERS Safety Report 7703019-8 (Version None)
Quarter: 2011Q3

REPORT INFORMATION
  Report Type: 
  Country: None (occurrence: None)
  Receive Date: 20110823
  Receipt Date: 20110809
  Transmission Date: 20111222
  Serious: Yes (Other)
  Sender: FDA-Public Use
  Company Number: US-CELGENEUS-163-21880-11081563

PATIENT
  Sex: Female
  Weight: 56.75 kg

DRUGS (15)
  1. OSTEO BI-FLEX [Concomitant]
     Route: 065
  2. SERTRALINE HYDROCHLORIDE [Concomitant]
     Route: 065
  3. REVLIMID [Suspect]
     Dosage: 10 MILLIGRAM
     Route: 048
     Dates: start: 20110701
  4. ALPHAGAN [Concomitant]
     Route: 065
  5. FLUOROURACIL [Concomitant]
     Route: 065
  6. VITAMIN D [Concomitant]
     Route: 065
  7. REVLIMID [Suspect]
     Indication: MULTIPLE MYELOMA
     Dosage: 25 MILLIGRAM
     Route: 048
     Dates: start: 20101028
  8. HYDROCODONE BITARTRATE AND ACETAMINOPHEN [Concomitant]
     Route: 065
  9. SF [Concomitant]
     Route: 065
  10. MULTI-VITAMINS [Concomitant]
     Route: 065
  11. ZOMETA [Concomitant]
     Route: 065
  12. CALCIUM CARBONATE [Concomitant]
     Route: 065
  13. REVLIMID [Suspect]
     Dosage: 25 MILLIGRAM
     Route: 048
     Dates: start: 20110101
  14. BENEFIBER [Concomitant]
     Route: 065
  15. DEXAMETHASONE [Concomitant]
     Route: 065

REACTIONS (1)
  - SKIN CANCER [None]
